FAERS Safety Report 26079997 (Version 2)
Quarter: 2025Q4

REPORT INFORMATION
  Report Type: Spontaneous
  Country: EU (occurrence: EU)
  Receive Date: 20251124
  Receipt Date: 20251227
  Transmission Date: 20260118
  Serious: Yes (Death, Life-Threatening, Hospitalization)
  Sender: ROCHE
  Company Number: None

PATIENT
  Age: 67 Year
  Sex: Female

DRUGS (5)
  1. BEVACIZUMAB [Suspect]
     Active Substance: BEVACIZUMAB
     Indication: Homologous recombination deficiency positive advanced ovarian cancer
     Dosage: UNK
  2. CARBOPLATIN [Concomitant]
     Active Substance: CARBOPLATIN
     Indication: Homologous recombination deficiency positive advanced ovarian cancer
     Dosage: SIX CYCLES
  3. PACLITAXEL [Concomitant]
     Active Substance: PACLITAXEL
     Indication: Homologous recombination deficiency positive advanced ovarian cancer
     Dosage: SIX CYCLES
  4. OLAPARIB [Concomitant]
     Active Substance: OLAPARIB
     Indication: Homologous recombination deficiency positive advanced ovarian cancer
  5. CYCLOPHOSPHAMIDE [Concomitant]
     Active Substance: CYCLOPHOSPHAMIDE
     Route: 048

REACTIONS (4)
  - Coma [Unknown]
  - Hypoglycaemia [Fatal]
  - Ovarian cancer metastatic [Unknown]
  - Lymphadenopathy [Unknown]
